FAERS Safety Report 6967876-5 (Version None)
Quarter: 2010Q3

REPORT INFORMATION
  Report Type: 
  Country: None (occurrence: None)
  Receive Date: 20100907
  Receipt Date: 20100615
  Transmission Date: 20110219
  Serious: Yes (Disabling)
  Sender: FDA-Public Use
  Company Number: A0858707A

PATIENT
  Age: 83 Year
  Sex: Male

DRUGS (7)
  1. REQUIP [Suspect]
     Indication: RESTLESS LEGS SYNDROME
     Dosage: 2MG TWICE PER DAY
     Route: 065
  2. COUMADIN [Concomitant]
  3. ALLOPURINOL [Concomitant]
  4. DOXYCYCLINE [Concomitant]
  5. SYNTHROID [Concomitant]
  6. ASPIRIN [Concomitant]
  7. VITAMIN TAB [Concomitant]

REACTIONS (1)
  - TREMOR [None]
